FAERS Safety Report 9124022 (Version 1)
Quarter: 2013Q1

REPORT INFORMATION
  Report Type: Spontaneous
  Country: US (occurrence: US)
  Receive Date: 20130116
  Receipt Date: 20130116
  Transmission Date: 20140127
  Serious: Yes (Other)
  Sender: FDA-Public Use
  Company Number: US-009507513-1012USA00482

PATIENT
  Age: 31 Year
  Sex: Female
  Weight: 62.6 kg

DRUGS (4)
  1. SINGULAIR [Suspect]
     Indication: RHINITIS
     Dosage: 1 DF, QD
     Route: 048
     Dates: start: 20100114, end: 20100116
  2. SINGULAIR [Suspect]
     Indication: SINUSITIS
  3. NASONEX [Concomitant]
  4. LEVAQUIN [Concomitant]

REACTIONS (10)
  - Emotional disorder [Unknown]
  - Anger [Unknown]
  - Major depression [Unknown]
  - Anxiety [Unknown]
  - Crying [Unknown]
  - Gastrointestinal disorder [Unknown]
  - Insomnia [Unknown]
  - Irritability [Unknown]
  - Agitation [Unknown]
  - Restlessness [Unknown]
